FAERS Safety Report 7448882-3 (Version None)
Quarter: 2011Q2

REPORT INFORMATION
  Report Type: 
  Country: None (occurrence: None)
  Receive Date: 20110429
  Receipt Date: 20100819
  Transmission Date: 20111010
  Serious: No
  Sender: FDA-Public Use
  Company Number: US-ASTRAZENECA-2010SE39290

PATIENT
  Sex: Female
  Weight: 74.8 kg

DRUGS (5)
  1. VITAMINS [Concomitant]
  2. CALCIUM [Concomitant]
  3. MAGNESIUM CALTRATE [Concomitant]
  4. NEXIUM [Suspect]
     Indication: GASTROOESOPHAGEAL REFLUX DISEASE
     Route: 048
     Dates: start: 20080101
  5. NEXIUM [Suspect]
     Indication: BARRETT'S OESOPHAGUS
     Route: 048
     Dates: start: 20080101

REACTIONS (3)
  - DRY MOUTH [None]
  - RHINITIS [None]
  - DRUG DOSE OMISSION [None]
